FAERS Safety Report 17460640 (Version 3)
Quarter: 2020Q1

REPORT INFORMATION
  Report Type: Spontaneous
  Country: US (occurrence: US)
  Receive Date: 20200226
  Receipt Date: 20200318
  Transmission Date: 20200409
  Serious: No
  Sender: FDA-Public Use
  Company Number: US-PFIZER INC-2020082776

PATIENT
  Age: 41 Year
  Sex: Female
  Weight: 104 kg

DRUGS (3)
  1. LYRICA [Suspect]
     Active Substance: PREGABALIN
     Indication: FIBROMYALGIA
     Dosage: 200 MG, 3X/DAY
     Route: 048
     Dates: start: 1999
  2. LYRICA [Suspect]
     Active Substance: PREGABALIN
     Dosage: 200 MG, 1X/DAY
     Route: 048
     Dates: start: 20200217
  3. LYRICA [Suspect]
     Active Substance: PREGABALIN
     Dosage: 650 MG, 1X/DAY
     Route: 048

REACTIONS (7)
  - Prescribed overdose [Unknown]
  - Intentional product use issue [Unknown]
  - Pruritus [Not Recovered/Not Resolved]
  - Ear pruritus [Unknown]
  - Off label use [Unknown]
  - Withdrawal syndrome [Unknown]
  - Insomnia [Unknown]

NARRATIVE: CASE EVENT DATE: 1999
